FAERS Safety Report 21165825 (Version 5)
Quarter: 2022Q4

REPORT INFORMATION
  Report Type: Report from Study
  Country: CO (occurrence: CO)
  Receive Date: 20220803
  Receipt Date: 20221011
  Transmission Date: 20230113
  Serious: Yes (Hospitalization, Other)
  Sender: FDA-Public Use
  Company Number: CO-NOVARTISPH-NVSC2022CO171750

PATIENT
  Sex: Male
  Weight: 74 kg

DRUGS (7)
  1. COSENTYX [Suspect]
     Active Substance: SECUKINUMAB
     Indication: Ankylosing spondylitis
     Dosage: 150 MG, QMO
     Route: 058
     Dates: start: 2021, end: 20220609
  2. METOPROLOL [Suspect]
     Active Substance: METOPROLOL
     Indication: Cardiac disorder
     Dosage: 25 MG, QD
     Route: 048
     Dates: start: 202208
  3. ATORVASTATIN [Suspect]
     Active Substance: ATORVASTATIN
     Indication: Cardiac disorder
     Dosage: 80 MG, QD
     Route: 048
     Dates: start: 202208
  4. HYDROCHLOROTHIAZIDE [Concomitant]
     Active Substance: HYDROCHLOROTHIAZIDE
     Indication: Cardiac disorder
     Dosage: 25 MG, QD
     Route: 048
     Dates: start: 202208
  5. ASPIRIN [Concomitant]
     Active Substance: ASPIRIN
     Indication: Cardiac disorder
     Dosage: 100 MG, QD
     Route: 048
     Dates: start: 202208
  6. FOLIC ACID [Concomitant]
     Active Substance: FOLIC ACID
     Indication: Cardiac disorder
     Dosage: 1 MG, QD
     Route: 048
     Dates: start: 2021
  7. SPIRONOLACTONE [Concomitant]
     Active Substance: SPIRONOLACTONE
     Indication: Cardiac disorder
     Dosage: 12.5 MG, QD
     Route: 048
     Dates: start: 202208

REACTIONS (10)
  - Coronary artery disease [Recovering/Resolving]
  - Localised infection [Unknown]
  - Platelet count increased [Unknown]
  - Cardiac failure [Unknown]
  - Gastric ulcer [Unknown]
  - Heart rate increased [Unknown]
  - Abdominal pain [Unknown]
  - Arthralgia [Unknown]
  - Inflammation [Unknown]
  - Product supply issue [Unknown]

NARRATIVE: CASE EVENT DATE: 20220101
